FAERS Safety Report 4437975-0 (Version None)
Quarter: 2004Q3

REPORT INFORMATION
  Report Type: 
  Country: None (occurrence: None)
  Receive Date: 20040831
  Receipt Date: 20040825
  Transmission Date: 20050211
  Serious: Yes (Hospitalization)
  Sender: FDA-Public Use
  Company Number: FR-ROCHE-378440

PATIENT
  Age: 56 Year
  Sex: Male
  Weight: 74 kg

DRUGS (5)
  1. XELODA [Suspect]
     Route: 048
     Dates: start: 20040305, end: 20040622
  2. PROGRAF [Suspect]
     Indication: DRUG USE FOR UNKNOWN INDICATION
     Route: 048
     Dates: start: 20010615, end: 20040607
  3. PROGRAF [Suspect]
     Route: 048
     Dates: start: 20040608, end: 20040621
  4. PROGRAF [Suspect]
     Route: 048
     Dates: start: 20040622
  5. ELOXATIN [Suspect]
     Indication: DRUG USE FOR UNKNOWN INDICATION
     Route: 042
     Dates: start: 20040305, end: 20040608

REACTIONS (3)
  - DEHYDRATION [None]
  - DIARRHOEA [None]
  - RENAL FAILURE ACUTE [None]
